FAERS Safety Report 4733342-0 (Version None)
Quarter: 2005Q3

REPORT INFORMATION
  Report Type: 
  Country: None (occurrence: None)
  Receive Date: 20050801
  Receipt Date: 20050801
  Transmission Date: 20060218
  Serious: Yes (Hospitalization)
  Sender: FDA-Public Use
  Company Number: None

PATIENT
  Age: 86 Year
  Sex: Male

DRUGS (9)
  1. SULINDAC [Suspect]
     Indication: PAIN
     Dosage: 200 MG BID
     Dates: start: 20050201
  2. SENNOSIDES [Concomitant]
  3. ZOCOR [Concomitant]
  4. TEMAZEPAM [Concomitant]
  5. NITROGLYCERIN [Concomitant]
  6. TAMSULOSIN [Concomitant]
  7. CETIRIZINE HCL [Concomitant]
  8. . [Concomitant]
  9. GOSGROLIN [Concomitant]

REACTIONS (1)
  - RENAL FAILURE ACUTE [None]
